FAERS Safety Report 16795290 (Version 2)
Quarter: 2020Q2

REPORT INFORMATION
  Report Type: Spontaneous
  Country: US (occurrence: US)
  Receive Date: 20190911
  Receipt Date: 20200413
  Transmission Date: 20200713
  Serious: Yes (Other)
  Sender: FDA-Public Use
  Company Number: US-TEVA-2019-US-1104568

PATIENT
  Age: 76 Year
  Sex: Male

DRUGS (3)
  1. FISH OIL [Concomitant]
     Active Substance: FISH OIL
  2. VITAMIN D3 [Concomitant]
     Active Substance: CHOLECALCIFEROL
     Dosage: VIT D3 1200
  3. TADAFIL [Suspect]
     Active Substance: TADALAFIL
     Route: 065
     Dates: start: 201808, end: 201904

REACTIONS (3)
  - Vision blurred [Not Recovered/Not Resolved]
  - Blindness [Unknown]
  - Optic ischaemic neuropathy [Unknown]

NARRATIVE: CASE EVENT DATE: 2019
